FAERS Safety Report 9510576 (Version 1)
Quarter: 2013Q3

REPORT INFORMATION
  Report Type: Spontaneous
  Country: US (occurrence: US)
  Receive Date: 20130909
  Receipt Date: 20130909
  Transmission Date: 20140515
  Serious: Yes (Death, Other)
  Sender: FDA-Public Use
  Company Number: US-PFIZER INC-2013258617

PATIENT
  Age: 57 Year
  Sex: Male

DRUGS (2)
  1. LYRICA [Suspect]
     Indication: NEURALGIA
     Dosage: UNK
  2. LYRICA [Suspect]
     Indication: CONVULSION

REACTIONS (8)
  - Drowning [Fatal]
  - Accidental death [Fatal]
  - Brain neoplasm [Unknown]
  - Impaired driving ability [Unknown]
  - Confusional state [Unknown]
  - Convulsion [Unknown]
  - Malaise [Unknown]
  - Drug ineffective [Unknown]
